FAERS Safety Report 7659246-1 (Version None)
Quarter: 2011Q3

REPORT INFORMATION
  Report Type: 
  Country: None (occurrence: None)
  Receive Date: 20110805
  Receipt Date: 20110801
  Transmission Date: 20111222
  Serious: Yes (Life-Threatening, Hospitalization)
  Sender: FDA-Public Use
  Company Number: NL-ROCHE-770086

PATIENT
  Sex: Female
  Weight: 79.1 kg

DRUGS (5)
  1. CAPECITABINE [Suspect]
     Indication: BREAST CANCER
     Dosage: 825MG/M2, 2X/DAY, FROM 1 TO 14 LAST ADMINISTERED DOSE: 2300 MG
     Route: 048
     Dates: start: 20110209, end: 20110307
  2. DOCETAXEL [Suspect]
     Indication: BREAST CANCER
     Route: 042
     Dates: start: 20110209, end: 20110302
  3. METOCLOPRAMIDE [Concomitant]
     Indication: NAUSEA
     Dates: start: 20110209, end: 20110213
  4. DEXAMETHASONE [Concomitant]
     Indication: NAUSEA
     Dates: start: 20110209, end: 20110210
  5. OMEPRAZOLE [Concomitant]
     Dosage: SCHEDULE : 1X
     Route: 048
     Dates: start: 20110218, end: 20110308

REACTIONS (1)
  - CARDIO-RESPIRATORY ARREST [None]
